FAERS Safety Report 16200881 (Version 1)
Quarter: 2019Q2

REPORT INFORMATION
  Report Type: Spontaneous
  Country: US (occurrence: US)
  Receive Date: 20190416
  Receipt Date: 20190416
  Transmission Date: 20190711
  Serious: No
  Sender: FDA-Public Use
  Company Number: US-BION-007093

PATIENT
  Age: 61 Year
  Sex: Female
  Weight: 104 kg

DRUGS (1)
  1. ALEVE [Suspect]
     Active Substance: NAPROXEN SODIUM
     Indication: PAIN
     Route: 048

REACTIONS (2)
  - Therapeutic product effect variable [Not Recovered/Not Resolved]
  - Abdominal discomfort [Recovered/Resolved]
